FAERS Safety Report 8763934 (Version 2)
Quarter: 2012Q4

REPORT INFORMATION
  Report Type: 
  Country: US (occurrence: US)
  Receive Date: 20120831
  Receipt Date: 20121205
  Transmission Date: 20130627
  Serious: No
  Sender: FDA-Public Use
  Company Number: US-PFIZER INC-2012213803

PATIENT
  Age: 63 Year
  Sex: Male
  Weight: 60.77 kg

DRUGS (2)
  1. LYRICA [Suspect]
     Indication: GENERAL BODY PAIN
     Dosage: 50 mg, Once daily
     Route: 048
     Dates: start: 201208, end: 201208
  2. LYRICA [Suspect]
     Dosage: 50 mg, 2x/day
     Route: 048
     Dates: start: 201208, end: 201208

REACTIONS (3)
  - Decreased appetite [Unknown]
  - Insomnia [Unknown]
  - Therapeutic response unexpected [Unknown]
